FAERS Safety Report 6870048-6 (Version None)
Quarter: 2010Q3

REPORT INFORMATION
  Report Type: 
  Country: None (occurrence: None)
  Receive Date: 20100722
  Receipt Date: 20081001
  Transmission Date: 20110219
  Serious: No
  Sender: FDA-Public Use
  Company Number: US-PFIZER INC-2008072780

PATIENT
  Sex: Female

DRUGS (2)
  1. CHANTIX [Suspect]
     Indication: SMOKING CESSATION THERAPY
     Route: 048
  2. LORAZEPAM [Concomitant]
     Route: 048
     Dates: start: 20070201

REACTIONS (4)
  - ANXIETY [None]
  - HEADACHE [None]
  - NERVOUSNESS [None]
  - NIGHTMARE [None]
